FAERS Safety Report 5537235-0 (Version None)
Quarter: 2007Q4

REPORT INFORMATION
  Report Type: 
  Country: None (occurrence: None)
  Receive Date: 20071207
  Receipt Date: 20071127
  Transmission Date: 20080405
  Serious: Yes (Other)
  Sender: FDA-Public Use
  Company Number: US-ROCHE-523769

PATIENT
  Age: 66 Year
  Sex: Female
  Weight: 48.5 kg

DRUGS (2)
  1. BONIVA [Suspect]
     Indication: OSTEOPOROSIS
     Dosage: STRENGTH AND FORMULATION REPORTED AS '150'
     Route: 048
     Dates: start: 20070715, end: 20070715
  2. TOPAMAX [Concomitant]
     Indication: TREMOR
     Dates: start: 20030101

REACTIONS (2)
  - GLOMERULAR FILTRATION RATE DECREASED [None]
  - INFLUENZA LIKE ILLNESS [None]
